FAERS Safety Report 19716492 (Version 1)
Quarter: 2021Q3

REPORT INFORMATION
  Report Type: Spontaneous
  Country: US (occurrence: US)
  Receive Date: 20210819
  Receipt Date: 20210819
  Transmission Date: 20211014
  Serious: Yes (Hospitalization)
  Sender: FDA-Public Use
  Company Number: US-BIOCODEX SA-2021000906

PATIENT

DRUGS (6)
  1. EPIDIOLEX [Concomitant]
     Active Substance: CANNABIDIOL
     Indication: PRODUCT USED FOR UNKNOWN INDICATION
     Route: 065
  2. ONFI [Concomitant]
     Active Substance: CLOBAZAM
     Indication: SEVERE MYOCLONIC EPILEPSY OF INFANCY
     Route: 065
  3. VALPROIC ACID. [Concomitant]
     Active Substance: VALPROIC ACID
     Indication: PRODUCT USED FOR UNKNOWN INDICATION
     Route: 065
  4. DIACOMIT [Suspect]
     Active Substance: STIRIPENTOL
     Indication: SEVERE MYOCLONIC EPILEPSY OF INFANCY
     Dosage: MIX EACH PACKET WITH 20ML OF WATER AND TAKE BY MOUTH AS FOLLOWS  WEEK 1: TAKE 10ML (125MG) BY MOUTH
     Route: 048
     Dates: start: 20210521
  5. LEVOCARNITINE. [Concomitant]
     Active Substance: LEVOCARNITINE
     Indication: PRODUCT USED FOR UNKNOWN INDICATION
     Route: 065
  6. DIACOMIT [Suspect]
     Active Substance: STIRIPENTOL
     Dosage: 125MG AND 250MG, AT BEDTIME INCREASED TO TWICE DAILY, TWICE DAILY THEREAFTER.
     Route: 065

REACTIONS (4)
  - Seizure [Unknown]
  - Balance disorder [Unknown]
  - Tongue thrust [Unknown]
  - Feeling abnormal [Unknown]
